FAERS Safety Report 7478128-1 (Version None)
Quarter: 2011Q2

REPORT INFORMATION
  Report Type: 
  Country: None (occurrence: None)
  Receive Date: 20110513
  Receipt Date: 20110510
  Transmission Date: 20111010
  Serious: Yes (Other)
  Sender: FDA-Public Use
  Company Number: AT-ABBOTT-11P-009-0712261-00

PATIENT
  Sex: Female
  Weight: 85 kg

DRUGS (2)
  1. HUMIRA [Suspect]
     Indication: PSORIASIS
     Dates: start: 20100112
  2. PARKEMED [Concomitant]
     Indication: BACK PAIN

REACTIONS (4)
  - TOOTHACHE [None]
  - TOOTH INFECTION [None]
  - OSTEITIS [None]
  - PERIODONTITIS [None]
